FAERS Safety Report 9915707 (Version 3)
Quarter: 2014Q1

REPORT INFORMATION
  Report Type: Spontaneous
  Country: IT (occurrence: IT)
  Receive Date: 20140221
  Receipt Date: 20140306
  Transmission Date: 20141002
  Serious: Yes (Hospitalization)
  Sender: FDA-Public Use
  Company Number: IT-RANBAXY-2013RR-76988

PATIENT
  Age: 15 Year
  Sex: Male

DRUGS (3)
  1. AMOXICILLIN/CLAVULANIC ACID [Suspect]
     Indication: HYPERPYREXIA
     Dosage: 3 G DAILY
     Route: 048
     Dates: start: 20131129, end: 20131203
  2. DELTACORTENE [Concomitant]
     Indication: DUCHENNE MUSCULAR DYSTROPHY
     Dosage: 3 DF
     Route: 048
  3. DIDROGYL [Concomitant]
     Indication: PRODUCT USED FOR UNKNOWN INDICATION
     Dosage: 4 GTT
     Route: 048

REACTIONS (2)
  - Hepatitis [Recovering/Resolving]
  - Medication error [Recovering/Resolving]
